FAERS Safety Report 19211938 (Version 1)
Quarter: 2021Q2

REPORT INFORMATION
  Report Type: Spontaneous
  Country: US (occurrence: US)
  Receive Date: 20210504
  Receipt Date: 20210504
  Transmission Date: 20210717
  Serious: Yes (Hospitalization)
  Sender: FDA-Public Use
  Company Number: None

PATIENT
  Sex: Male
  Weight: 51.8 kg

DRUGS (6)
  1. CYTARABINE METHOTREXATE [Concomitant]
  2. CYCLOPHOSPHAMIDE. [Suspect]
     Active Substance: CYCLOPHOSPHAMIDE
  3. VINCRISTINE SULFATE. [Concomitant]
     Active Substance: VINCRISTINE SULFATE
  4. THIOGUANINE (6?TG) [Concomitant]
     Active Substance: THIOGUANINE ANHYDROUS
  5. PEG?L?ASPARAGINASE (PEGASPARGASE, ONSCOSPAR) [Concomitant]
  6. METHOTREXATE. [Concomitant]
     Active Substance: METHOTREXATE

REACTIONS (5)
  - Platelet transfusion [None]
  - Blood pressure systolic decreased [None]
  - Pyrexia [None]
  - Klebsiella infection [None]
  - Tachycardia [None]

NARRATIVE: CASE EVENT DATE: 20210426
